FAERS Safety Report 18078117 (Version 1)
Quarter: 2020Q3

REPORT INFORMATION
  Report Type: Spontaneous
  Country: US (occurrence: US)
  Receive Date: 20200727
  Receipt Date: 20200727
  Transmission Date: 20201103
  Serious: No
  Sender: FDA-Public Use
  Company Number: US-SEATTLE GENETICS-2020SGN02298

PATIENT
  Sex: Female

DRUGS (4)
  1. CAPECITABINE. [Suspect]
     Active Substance: CAPECITABINE
     Indication: BREAST CANCER FEMALE
  2. TUKYSA [Suspect]
     Active Substance: TUCATINIB
     Dosage: 150 MG, BID
     Route: 048
  3. TUKYSA [Suspect]
     Active Substance: TUCATINIB
     Indication: BREAST CANCER FEMALE
     Dosage: UNK UNK, BID
     Route: 048
  4. HERCEPTIN [Suspect]
     Active Substance: TRASTUZUMAB
     Indication: BREAST CANCER FEMALE

REACTIONS (20)
  - Renal pain [Unknown]
  - Stress [Unknown]
  - Tearfulness [Unknown]
  - Arthralgia [Unknown]
  - Abdominal pain upper [Unknown]
  - Headache [Unknown]
  - Tremor [Unknown]
  - Hemiparesis [Unknown]
  - Weight increased [Unknown]
  - Decreased appetite [Unknown]
  - Emotional disorder [Unknown]
  - Therapy change [Unknown]
  - Memory impairment [Unknown]
  - Brain oedema [Unknown]
  - Insomnia [Unknown]
  - Fatigue [Unknown]
  - Illness [Unknown]
  - Depression [Unknown]
  - Social problem [Unknown]
  - Confusional state [Unknown]
